FAERS Safety Report 14673429 (Version 4)
Quarter: 2018Q2

REPORT INFORMATION
  Report Type: Report from Study
  Country: IT (occurrence: IT)
  Receive Date: 20180323
  Receipt Date: 20180503
  Transmission Date: 20180711
  Serious: Yes (Hospitalization, Other)
  Sender: FDA-Public Use
  Company Number: IT-PFIZER INC-2018118914

PATIENT
  Age: 2 Year
  Sex: Male

DRUGS (2)
  1. LORAZEPAM. [Suspect]
     Active Substance: LORAZEPAM
     Dosage: 5 MG, SINGLE
     Dates: start: 20180219, end: 20180219
  2. COUMADIN [Suspect]
     Active Substance: WARFARIN SODIUM
     Dosage: 60 MG, SINGLE
     Route: 048
     Dates: start: 20180219, end: 20180219

REACTIONS (3)
  - Accidental poisoning [Recovered/Resolved]
  - Accidental overdose [Recovered/Resolved]
  - Somnolence [Recovered/Resolved]

NARRATIVE: CASE EVENT DATE: 20180219
